FAERS Safety Report 5204362-7 (Version None)
Quarter: 2006Q4

REPORT INFORMATION
  Report Type: 
  Country: None (occurrence: None)
  Receive Date: 20061026
  Receipt Date: 20060811
  Transmission Date: 20070319
  Serious: Yes (Other)
  Sender: FDA-Public Use
  Company Number: 2006065769

PATIENT
  Age: 29 Year
  Sex: Female
  Weight: 65.7716 kg

DRUGS (3)
  1. LYRICA [Suspect]
     Indication: CONVULSION
     Dosage: 200 MG (100 MG, 2 IN 1 D)
     Dates: start: 20060101, end: 20060501
  2. KEPPRA [Concomitant]
  3. ZONEGRAN [Concomitant]

REACTIONS (2)
  - CONVULSION [None]
  - URINARY RETENTION [None]
